FAERS Safety Report 7428886-7 (Version None)
Quarter: 2011Q2

REPORT INFORMATION
  Report Type: 
  Country: None (occurrence: None)
  Receive Date: 20110421
  Receipt Date: 20110415
  Transmission Date: 20111010
  Serious: Yes (Hospitalization)
  Sender: FDA-Public Use
  Company Number: US-B.I. PHARMACEUTICALS,INC./RIDGEFIELD-2011-BP-05049BP

PATIENT
  Sex: Male

DRUGS (18)
  1. PRADAXA [Suspect]
     Indication: ANTICOAGULANT THERAPY
     Dosage: 10 MG
  2. METOLAZONE [Concomitant]
  3. ROPINIROLE [Concomitant]
  4. BROMDAY [Concomitant]
  5. ENALAPRIL MALEATE [Concomitant]
  6. FURSOMEMIDE [Concomitant]
  7. JANUMET [Concomitant]
  8. SOOTHIE [Concomitant]
  9. LANTUS [Concomitant]
  10. LEVOTHYROXINE SODIUM [Concomitant]
  11. POTASSIUM [Concomitant]
  12. VITAMIN A [Concomitant]
  13. EX-STRENGTH  TYLENOL [Concomitant]
  14. NOVOLOG [Concomitant]
  15. PROAIR HFA [Concomitant]
  16. ALLOPURINOL [Concomitant]
     Dosage: 200 MG
  17. SIMVASTATIN [Concomitant]
  18. TRAVATAN [Concomitant]

REACTIONS (4)
  - RECTAL HAEMORRHAGE [None]
  - DYSPNOEA [None]
  - WHEEZING [None]
  - CHEST PAIN [None]
